FAERS Safety Report 23527765 (Version 1)
Quarter: 2024Q1

REPORT INFORMATION
  Report Type: Other
  Country: US (occurrence: US)
  Receive Date: 20240215
  Receipt Date: 20240215
  Transmission Date: 20240410
  Serious: Yes (Death)
  Sender: FDA-Public Use
  Company Number: US-B.Braun Medical Inc.-2153277

PATIENT
  Age: 59 Year
  Sex: Male

DRUGS (3)
  1. METRONIDAZOLE [Suspect]
     Active Substance: METRONIDAZOLE
  2. CITRIC ACID [Suspect]
     Active Substance: CITRIC ACID MONOHYDRATE
  3. GLYCERIN [Suspect]
     Active Substance: GLYCERIN

REACTIONS (3)
  - Death [Fatal]
  - Medication error [Fatal]
  - Accidental overdose [Fatal]
